FAERS Safety Report 25753993 (Version 1)
Quarter: 2025Q3

REPORT INFORMATION
  Report Type: Spontaneous
  Country: CN (occurrence: CN)
  Receive Date: 20250903
  Receipt Date: 20250903
  Transmission Date: 20251021
  Serious: Yes (Hospitalization)
  Sender: JIANGSU HENGRUI
  Company Number: CN-JIANGSU HENGRUI PHARMACEUTICALS CO., LTD.-H2025230501

PATIENT
  Age: 52 Year
  Weight: 40 kg

DRUGS (3)
  1. PACLITAXEL [Suspect]
     Active Substance: PACLITAXEL
     Indication: Gastric cancer
  2. RIVOCERANIB MESYLATE [Suspect]
     Active Substance: RIVOCERANIB MESYLATE
     Indication: Gastric cancer
  3. TISLELIZUMAB [Concomitant]
     Active Substance: TISLELIZUMAB
     Indication: Gastric cancer

REACTIONS (1)
  - Peptic ulcer perforation [Recovering/Resolving]
